FAERS Safety Report 18485673 (Version 3)
Quarter: 2020Q4

REPORT INFORMATION
  Report Type: Report from Study
  Country: US (occurrence: US)
  Receive Date: 20201110
  Receipt Date: 20201127
  Transmission Date: 20210114
  Serious: Yes (Life-Threatening, Hospitalization)
  Sender: FDA-Public Use
  Company Number: NVSC2020US298817

PATIENT
  Age: 14 Year
  Sex: Male
  Weight: 126.1 kg

DRUGS (11)
  1. COMPARATOR METHOTREXATE [Suspect]
     Active Substance: METHOTREXATE
     Indication: ACUTE LYMPHOCYTIC LEUKAEMIA
     Dosage: 15 MILLIGRAM (DAYS 1, 36)
     Route: 037
     Dates: start: 20200914
  2. DEXAMETHASONE. [Suspect]
     Active Substance: DEXAMETHASONE
     Indication: ACUTE LYMPHOCYTIC LEUKAEMIA
     Dosage: 13 MILLIGRAM (DAYS 1-7, 15-21)
     Route: 048
     Dates: start: 20200914
  3. CYCLOPHOSPHAMIDE. [Suspect]
     Active Substance: CYCLOPHOSPHAMIDE
     Indication: ACUTE LYMPHOCYTIC LEUKAEMIA
     Dosage: 2530 MILLIGRAM (DAY 29)
     Route: 042
     Dates: start: 20201021
  4. DOXORUBICIN [Suspect]
     Active Substance: DOXORUBICIN
     Indication: ACUTE LYMPHOCYTIC LEUKAEMIA
     Dosage: 63 MILLIGRAM (DAYS 1, 8, 15)
     Route: 042
     Dates: start: 20200914
  5. THIOGUANINE [Suspect]
     Active Substance: THIOGUANINE
     Dosage: 40 MILLIGRAM (DAYS 29-42)
     Route: 048
     Dates: start: 20201101
  6. CYTARABINE. [Suspect]
     Active Substance: CYTARABINE
     Indication: ACUTE LYMPHOCYTIC LEUKAEMIA
     Dosage: 190 MILLIGRAM (DAYS 29-32, 36-39)
     Route: 042
     Dates: start: 20201021
  7. ASPARAGINASE [Suspect]
     Active Substance: ASPARAGINASE
     Indication: ACUTE LYMPHOCYTIC LEUKAEMIA
     Dosage: 60000 INTERNATIONAL UNIT (DAYS 3, 5, 7, 9 ,11, 15, 43, 45)
     Route: 042
     Dates: start: 20200916
  8. THIOGUANINE [Suspect]
     Active Substance: THIOGUANINE
     Indication: ACUTE LYMPHOCYTIC LEUKAEMIA
     Dosage: 40 MILLIGRAM (DAYS 29-42)
     Route: 048
     Dates: start: 20201021, end: 20201031
  9. INC424A [Suspect]
     Active Substance: RUXOLITINIB
     Indication: ACUTE LYMPHOCYTIC LEUKAEMIA
     Dosage: 100 MG, BID
     Route: 048
     Dates: start: 20200914, end: 20201031
  10. INC424A [Suspect]
     Active Substance: RUXOLITINIB
     Dosage: 100 MG, BID
     Route: 048
     Dates: start: 20201101
  11. VINCRISTINE [Suspect]
     Active Substance: VINCRISTINE
     Indication: ACUTE LYMPHOCYTIC LEUKAEMIA
     Dosage: 2 MILLIGRAM (DAYS 1, 8, 15, 43)
     Route: 042
     Dates: start: 20200914

REACTIONS (2)
  - Pneumonia [Not Recovered/Not Resolved]
  - Respiratory distress [Not Recovered/Not Resolved]

NARRATIVE: CASE EVENT DATE: 20201031
